FAERS Safety Report 25697899 (Version 1)
Quarter: 2025Q3

REPORT INFORMATION
  Report Type: Spontaneous
  Country: US (occurrence: US)
  Receive Date: 20250819
  Receipt Date: 20250819
  Transmission Date: 20251020
  Serious: Yes (Other)
  Sender: AMGEN
  Company Number: US-AMGEN-USASP2025160290

PATIENT
  Age: 59 Year
  Sex: Female

DRUGS (11)
  1. PREDNISONE [Suspect]
     Active Substance: PREDNISONE
     Indication: Bronchitis
     Route: 065
     Dates: start: 201912
  2. PREDNISONE [Suspect]
     Active Substance: PREDNISONE
     Indication: Otitis media
  3. ATORVASTATIN [Concomitant]
     Active Substance: ATORVASTATIN
  4. VALSARTAN [Concomitant]
     Active Substance: VALSARTAN
  5. SEMAGLUTIDE [Concomitant]
     Active Substance: SEMAGLUTIDE
  6. METFORMIN [Concomitant]
     Active Substance: METFORMIN HYDROCHLORIDE
  7. TRIAMTERENE AND HYDROCHLOROTHIAZIDE [Concomitant]
     Active Substance: HYDROCHLOROTHIAZIDE\TRIAMTERENE
  8. BUSPIRONE [Concomitant]
     Active Substance: BUSPIRONE HYDROCHLORIDE
  9. LANSOPRAZOLE [Concomitant]
     Active Substance: LANSOPRAZOLE
  10. VITAMIN D3 [Concomitant]
     Active Substance: CHOLECALCIFEROL
  11. AZITHROMYCIN [Concomitant]
     Active Substance: AZITHROMYCIN
     Indication: Ear infection

REACTIONS (7)
  - Cataract [Unknown]
  - Pseudopapilloedema [Unknown]
  - Meningocele [Unknown]
  - Intracranial venous sinus stenosis [Unknown]
  - Drug ineffective for unapproved indication [Unknown]
  - Upper-airway cough syndrome [Unknown]
  - Off label use [Unknown]
